FAERS Safety Report 9891963 (Version 2)
Quarter: 2014Q1

REPORT INFORMATION
  Report Type: Spontaneous
  Country: FR (occurrence: FR)
  Receive Date: 20140212
  Receipt Date: 20140219
  Transmission Date: 20141002
  Serious: Yes (Hospitalization)
  Sender: FDA-Public Use
  Company Number: FR-B.I. PHARMACEUTICALS,INC./RIDGEFIELD-2014-BI-05812FF

PATIENT
  Age: 76 Year
  Sex: Male
  Weight: 70 kg

DRUGS (8)
  1. PRADAXA [Suspect]
     Indication: ARRHYTHMIA
     Dosage: 300 MG
     Route: 048
     Dates: end: 201401
  2. HYTACAND 16 MG/12.5 MG [Suspect]
     Indication: HYPERTENSION
     Dosage: DOSE PER APPLICATION: 16 MG/12.5 MG, DIALY DOSE: 16 MG/12.5 MG
     Route: 048
  3. BURINEX [Suspect]
     Indication: HYPERTENSION
     Dosage: 1 MG
     Route: 048
     Dates: end: 201401
  4. ALFUZOSINE HYDROCHLORIDE [Suspect]
     Indication: PROSTATISM
     Dosage: 10 MG
     Route: 048
  5. PRAVASTATIN SODIUM [Concomitant]
     Indication: DYSLIPIDAEMIA
     Dosage: 40 MG
     Route: 048
  6. ALLOPURINOL 100 [Concomitant]
     Indication: HYPERURICAEMIA
     Route: 048
  7. HEMIGOXINE NATIVELLE 0.125 MG [Concomitant]
     Indication: ARRHYTHMIA
     Route: 065
  8. POTASSIUM [Concomitant]
     Indication: HYPOKALAEMIA
     Dosage: 600 MG
     Route: 048

REACTIONS (3)
  - Haemorrhage [Not Recovered/Not Resolved]
  - Fall [Recovered/Resolved]
  - Orthostatic hypotension [Not Recovered/Not Resolved]
